FAERS Safety Report 12636622 (Version 1)
Quarter: 2016Q3

REPORT INFORMATION
  Report Type: Spontaneous
  Country: FR (occurrence: FR)
  Receive Date: 20160809
  Receipt Date: 20160809
  Transmission Date: 20161109
  Serious: Yes (Life-Threatening, Other)
  Sender: FDA-Public Use
  Company Number: FR-PFIZER INC-2016365735

PATIENT
  Age: 65 Year
  Sex: Female

DRUGS (11)
  1. GEMCITABINE HYDROCHLORIDE. [Suspect]
     Active Substance: GEMCITABINE HYDROCHLORIDE
     Indication: ADENOCARCINOMA PANCREAS
     Dosage: ONE INFUSION, WEEKLY
     Route: 042
     Dates: start: 20160616, end: 20160623
  2. LEVOTHYROX [Concomitant]
     Active Substance: LEVOTHYROXINE
     Dosage: 75 UG, DAILY
  3. SEVREDOL [Concomitant]
     Active Substance: MORPHINE
     Dosage: 5 MG, UNK
  4. TAREG [Concomitant]
     Active Substance: VALSARTAN
     Dosage: UNK, IN THE MORNING
  5. VASTAREL [Concomitant]
     Active Substance: TRIMETAZIDINE DIHYDROCHLORIDE
     Dosage: 35 UNK, TWICE DAILY (MORNING AND EVENING)
  6. ONDANSETRON [Concomitant]
     Active Substance: ONDANSETRON
     Dosage: UNK C1D8
     Dates: start: 20160623, end: 20160623
  7. MORPHINE [Concomitant]
     Active Substance: MORPHINE
     Dosage: UNK, TWICE DAILY (MORNING AND EVENING)
  8. LOXEN [Concomitant]
     Active Substance: NICARDIPINE HYDROCHLORIDE
     Dosage: UNK, TWICE DAILY (MORNING AND EVENING)
  9. TEMERIT [Concomitant]
     Active Substance: NEBIVOLOL
     Dosage: 5 MG, DAILY
  10. PARACETAMOL [Concomitant]
     Active Substance: ACETAMINOPHEN
     Dosage: 4 G, DAILY
  11. ROPINIROLE. [Concomitant]
     Active Substance: ROPINIROLE
     Dosage: 0.5 UNK, THRICE DAILY (MORNING, MIDDAY, EVENING)

REACTIONS (1)
  - Cerebrovascular accident [Not Recovered/Not Resolved]

NARRATIVE: CASE EVENT DATE: 20160624
